FAERS Safety Report 9350917 (Version 2)
Quarter: 2013Q3

REPORT INFORMATION
  Report Type: Report from Study
  Country: SE (occurrence: SE)
  Receive Date: 20130617
  Receipt Date: 20130812
  Transmission Date: 20140515
  Serious: Yes (Hospitalization)
  Sender: FDA-Public Use
  Company Number: SE-ASTELLAS-2013EU005130

PATIENT
  Age: 68 Year
  Sex: Male
  Weight: 108 kg

DRUGS (7)
  1. ENZALUTAMIDE [Suspect]
     Indication: PROSTATE CANCER
     Dosage: 40 MG, QID
     Route: 048
     Dates: start: 20130312, end: 20130612
  2. YENTREVE [Interacting]
     Indication: INCONTINENCE
     Dosage: 40 MG, BID
     Route: 048
     Dates: end: 201306
  3. VESICARE [Concomitant]
     Indication: INCONTINENCE
     Dosage: 10 MG, UID/QD
     Route: 048
  4. CANDESARTAN [Concomitant]
     Indication: HYPERTENSION
     Dosage: 32 MG, UID/QD
     Route: 048
  5. AMLODIPIN                          /00972401/ [Concomitant]
     Indication: HYPERTENSION
     Dosage: 10 MG, UID/QD
     Route: 048
  6. METOPROLOL [Concomitant]
     Indication: HYPERTENSION
     Dosage: 50 MG, BID
     Route: 048
  7. DIGOXIN [Concomitant]
     Indication: ATRIAL FIBRILLATION
     Dosage: 0.25 MG, UID/QD
     Route: 065

REACTIONS (5)
  - Drug interaction [Unknown]
  - Infection [Recovered/Resolved]
  - Confusional state [Recovered/Resolved]
  - Hallucination [Recovered/Resolved]
  - Necrosis [Unknown]
